FAERS Safety Report 9911570 (Version 1)
Quarter: 2014Q1

REPORT INFORMATION
  Report Type: Spontaneous
  Country: US (occurrence: US)
  Receive Date: 20140219
  Receipt Date: 20140219
  Transmission Date: 20141002
  Serious: Yes (Hospitalization)
  Sender: FDA-Public Use
  Company Number: PHHY2014US015729

PATIENT
  Age: 43 Year
  Sex: Male

DRUGS (6)
  1. VALPROIC ACID [Suspect]
     Dosage: 500 MG, BID
  2. VALPROIC ACID [Suspect]
     Dosage: UNK
     Route: 042
  3. HALOPERIDOL [Suspect]
  4. OLANZAPINE [Suspect]
     Dosage: 5 MG, BID
  5. OLANZAPINE [Suspect]
     Dosage: 10 MG, BID
  6. QUETIAPINE [Suspect]
     Dosage: 200 MG, UNK

REACTIONS (6)
  - Ammonia increased [Recovering/Resolving]
  - Bradycardia [Unknown]
  - Delirium [Unknown]
  - Sinus arrest [Unknown]
  - Akathisia [Unknown]
  - Hypotension [Unknown]
